FAERS Safety Report 9283443 (Version 1)
Quarter: 2013Q2

REPORT INFORMATION
  Report Type: Spontaneous
  Country: GB (occurrence: None)
  Receive Date: 20130506
  Receipt Date: 20130506
  Transmission Date: 20140414
  Serious: Yes (Hospitalization)
  Sender: FDA-Public Use
  Company Number: 2009SGN00093

PATIENT
  Age: 42 Year
  Sex: Male
  Weight: 86 kg

DRUGS (5)
  1. SGN-35 [Suspect]
     Indication: ANAPLASTIC LARGE CELL LYMPHOMA T- AND NULL-CELL TYPES
     Dosage: 1.8 MG/KG, Q21D, INTRAVENOUS
     Route: 042
     Dates: start: 20091117, end: 20091117
  2. SGN-35 [Suspect]
     Indication: ANAPLASTIC LARGE CELL LYMPHOMA T- AND NULL-CELL TYPES
     Dosage: 1.8 MG/KG, Q21D, INTRAVENOUS
     Route: 042
     Dates: start: 20091117, end: 20091117
  3. METOCLOPRAMIDE (METOCLOPRAMIDE HYDROCHLORIDE) [Concomitant]
  4. ATOVASTATIN (ATORVASTATIN CALCIUM) [Concomitant]
  5. GLICLAZIDE (GLICLAZIDE) [Concomitant]

REACTIONS (2)
  - Tumour lysis syndrome [None]
  - Stem cell transplant [None]
